FAERS Safety Report 7889910-0 (Version None)
Quarter: 2011Q4

REPORT INFORMATION
  Report Type: 
  Country: None (occurrence: None)
  Receive Date: 20111103
  Receipt Date: 20111031
  Transmission Date: 20120403
  Serious: Yes (Death, Hospitalization, Other)
  Sender: FDA-Public Use
  Company Number: DE-ELI_LILLY_AND_COMPANY-DE201110008099

PATIENT
  Age: 79 Year
  Sex: Female

DRUGS (3)
  1. HUMULIN N [Suspect]
     Dosage: UNK
     Dates: start: 20110901
  2. HUMULIN N [Suspect]
     Dosage: UNK
     Route: 058
     Dates: end: 20110817
  3. HUMULIN R [Suspect]
     Dosage: UNK
     Route: 058
     Dates: start: 20110817, end: 20110901

REACTIONS (5)
  - VEIN DISORDER [None]
  - BLOOD GLUCOSE INCREASED [None]
  - DRUG NAME CONFUSION [None]
  - CEREBROVASCULAR ACCIDENT [None]
  - WRONG DRUG ADMINISTERED [None]
